FAERS Safety Report 5744749-7 (Version None)
Quarter: 2008Q2

REPORT INFORMATION
  Report Type: 
  Country: None (occurrence: None)
  Receive Date: 20080516
  Receipt Date: 20080505
  Transmission Date: 20081010
  Serious: Yes (Other)
  Sender: FDA-Public Use
  Company Number: CERZ-1000187

PATIENT
  Age: 41 Year
  Sex: Female
  Weight: 53.6 kg

DRUGS (4)
  1. CEREZYME [Suspect]
     Indication: GAUCHER'S DISEASE
     Dosage: 60 U/KG, Q2W, UNK, 44 U/KG, Q3W, UNK, 29 U/KG, Q3W, UNK, 45 U/KG, Q2W, INTRAVENOUS
     Route: 042
     Dates: start: 19990901, end: 20041101
  2. CEREZYME [Suspect]
     Indication: GAUCHER'S DISEASE
     Dosage: 60 U/KG, Q2W, UNK, 44 U/KG, Q3W, UNK, 29 U/KG, Q3W, UNK, 45 U/KG, Q2W, INTRAVENOUS
     Route: 042
     Dates: start: 20041101, end: 20050601
  3. CEREZYME [Suspect]
     Indication: GAUCHER'S DISEASE
     Dosage: 60 U/KG, Q2W, UNK, 44 U/KG, Q3W, UNK, 29 U/KG, Q3W, UNK, 45 U/KG, Q2W, INTRAVENOUS
     Route: 042
     Dates: start: 20050601, end: 20070101
  4. CEREZYME [Suspect]
     Indication: GAUCHER'S DISEASE
     Dosage: 60 U/KG, Q2W, UNK, 44 U/KG, Q3W, UNK, 29 U/KG, Q3W, UNK, 45 U/KG, Q2W, INTRAVENOUS
     Route: 042
     Dates: start: 20070101

REACTIONS (2)
  - BONE CYST [None]
  - BONE INFARCTION [None]
